FAERS Safety Report 24105726 (Version 1)
Quarter: 2024Q3

REPORT INFORMATION
  Report Type: Report from Study
  Country: TW (occurrence: TW)
  Receive Date: 20240717
  Receipt Date: 20240717
  Transmission Date: 20241016
  Serious: Yes (Hospitalization)
  Sender: BAYER
  Company Number: TW-BAYER-2024A103712

PATIENT
  Sex: Male

DRUGS (1)
  1. NEXAVAR [Suspect]
     Active Substance: SORAFENIB
     Indication: Hepatocellular carcinoma
     Dosage: 200 MG
     Dates: start: 20240611

REACTIONS (3)
  - Feeding disorder [Unknown]
  - Abdominal pain [Unknown]
  - Coma [Unknown]

NARRATIVE: CASE EVENT DATE: 20240101
